FAERS Safety Report 9971120 (Version 1)
Quarter: 2014Q1

REPORT INFORMATION
  Report Type: Report from Study
  Country: US (occurrence: US)
  Receive Date: 20140306
  Receipt Date: 20140306
  Transmission Date: 20141002
  Serious: No
  Sender: FDA-Public Use
  Company Number: US-ABBVIE-13P-163-1150939-00

PATIENT
  Age: 51 Year
  Sex: Female

DRUGS (14)
  1. HUMIRA [Suspect]
     Indication: RHEUMATOID ARTHRITIS
     Dosage: INITIAL DOSE
     Dates: start: 20130918
  2. METFORMIN [Concomitant]
     Indication: DIABETES MELLITUS
     Dosage: DAILY
  3. LOTREL [Concomitant]
     Indication: HYPERTENSION
     Dosage: DAILY
  4. LORAZEPAM [Concomitant]
     Indication: STRESS
  5. CYMBALTA [Concomitant]
     Indication: PAIN
     Dosage: DAILY
  6. CYMBALTA [Concomitant]
     Indication: DEPRESSION
  7. OXYCODONE [Concomitant]
     Indication: PAIN
  8. METOPROLOL [Concomitant]
     Indication: DIABETES MELLITUS
     Dosage: DAILY
  9. LONOX [Concomitant]
     Indication: DIARRHOEA
     Dosage: DAILY
  10. IBUPROFEN [Concomitant]
     Indication: PAIN
  11. FLEXERIL [Concomitant]
     Indication: MUSCLE SPASMS
     Dosage: AT NIGHT AND AS NEEDED
  12. ZYPREXA [Concomitant]
     Indication: DEPRESSION
     Dosage: DAILY
  13. LUNESTA [Concomitant]
     Indication: INSOMNIA
  14. LASIX [Concomitant]
     Indication: FLUID RETENTION

REACTIONS (1)
  - Injection site pain [Recovered/Resolved]
